FAERS Safety Report 18419002 (Version 1)
Quarter: 2020Q4

REPORT INFORMATION
  Report Type: Spontaneous
  Country: US (occurrence: US)
  Receive Date: 20201022
  Receipt Date: 20201022
  Transmission Date: 20210114
  Serious: Yes (Hospitalization)
  Sender: FDA-Public Use
  Company Number: None

PATIENT
  Age: 56 Year
  Sex: Female
  Weight: 54.9 kg

DRUGS (1)
  1. INJECTAFER [Suspect]
     Active Substance: FERRIC CARBOXYMALTOSE
     Indication: IRON DEFICIENCY ANAEMIA
     Dates: start: 20201019

REACTIONS (5)
  - Feeling abnormal [None]
  - Back pain [None]
  - Injection related reaction [None]
  - Blood pressure increased [None]
  - Chest discomfort [None]

NARRATIVE: CASE EVENT DATE: 20201019
